FAERS Safety Report 6479881-6 (Version None)
Quarter: 2009Q4

REPORT INFORMATION
  Report Type: 
  Country: None (occurrence: None)
  Receive Date: 20091208
  Receipt Date: 20091029
  Transmission Date: 20100525
  Serious: Yes (Hospitalization)
  Sender: FDA-Public Use
  Company Number: FR-SANOFI-AVENTIS-200912055FR

PATIENT
  Age: 86 Year
  Sex: Male
  Weight: 66 kg

DRUGS (15)
  1. LEFLUNOMIDE [Suspect]
     Dosage: DOSE UNIT: 10 MG
     Route: 048
     Dates: start: 20090306, end: 20090319
  2. LEFLUNOMIDE [Suspect]
     Dosage: DOSE UNIT: 20 MG
     Route: 048
     Dates: start: 20090320
  3. DERMOVAL [Suspect]
     Route: 061
     Dates: start: 20090306
  4. COMTAN [Concomitant]
     Indication: PARKINSON'S DISEASE
     Dosage: DOSE UNIT: 200 MG
     Route: 048
  5. IKOREL [Concomitant]
     Indication: ANGINA PECTORIS
     Dosage: DOSE UNIT: 10 MG
     Route: 048
  6. KARDEGIC /FRA/ [Concomitant]
     Route: 048
  7. PERMIXON [Concomitant]
     Indication: DYSURIA
     Route: 048
  8. CARBIDOPA-LEVODOPA [Concomitant]
     Indication: PARKINSON'S DISEASE
  9. EXELON [Concomitant]
  10. LOPERAMIDE [Concomitant]
     Dates: start: 20090506
  11. STILNOX /FRA/ [Concomitant]
     Indication: INSOMNIA
  12. FORLAX [Concomitant]
     Indication: CONSTIPATION
  13. ESOMEPRAZOLE [Concomitant]
  14. DOMPERIDONE [Concomitant]
     Indication: NAUSEA
  15. DOLIPRANE [Concomitant]
     Indication: PAIN

REACTIONS (2)
  - CHEST PAIN [None]
  - TRANSAMINASES INCREASED [None]
